FAERS Safety Report 5201971-6 (Version None)
Quarter: 2007Q1

REPORT INFORMATION
  Report Type: 
  Country: None (occurrence: None)
  Receive Date: 20070104
  Receipt Date: 20070104
  Transmission Date: 20070707
  Serious: No
  Sender: FDA-Public Use
  Company Number: None

PATIENT
  Age: 46 Year
  Sex: Female
  Weight: 105.6881 kg

DRUGS (1)
  1. METFORMIN 500MG [Suspect]
     Indication: DIABETES MELLITUS NON-INSULIN-DEPENDENT
     Dosage: 500 MG UP TO 2 OR 3 QD ORAL
     Route: 048
     Dates: start: 20040101, end: 20061201

REACTIONS (2)
  - DIARRHOEA [None]
  - NAUSEA [None]
